FAERS Safety Report 19193289 (Version 6)
Quarter: 2021Q2

REPORT INFORMATION
  Report Type: Report from Study
  Country: CN (occurrence: CN)
  Receive Date: 20210429
  Receipt Date: 20210625
  Transmission Date: 20210717
  Serious: Yes (Death, Hospitalization)
  Sender: FDA-Public Use
  Company Number: CN-ROCHE-2798861

PATIENT
  Age: 70 Year
  Sex: Female
  Weight: 49.5 kg

DRUGS (10)
  1. ACETYLCYSTEINE. [Concomitant]
     Active Substance: ACETYLCYSTEINE
     Dates: start: 20210224, end: 20210224
  2. ACETYLCYSTEINE. [Concomitant]
     Active Substance: ACETYLCYSTEINE
     Dates: start: 20210407, end: 20210407
  3. NIFEDIPINE. [Concomitant]
     Active Substance: NIFEDIPINE
     Indication: HYPERTENSION
     Dates: start: 2005
  4. TRASTUZUMAB EMTANSINE [Suspect]
     Active Substance: ADO-TRASTUZUMAB EMTANSINE
     Indication: BREAST CANCER
     Dosage: ON 24/FEB/2021, DOSE LAST STUDY DRUG ADMIN PRIOR AE IS 199.8 MG?ON 07/APR/2021, LAST DOSE OF TRASTUZ
     Route: 042
     Dates: start: 20181026
  5. CEPHALOSPORIN C [Concomitant]
     Active Substance: CEPHALOSPORIN C
     Indication: ANTIINFLAMMATORY THERAPY
     Dates: start: 20210219, end: 20210222
  6. OMEPRAZOLE SODIUM [Concomitant]
     Active Substance: OMEPRAZOLE SODIUM
     Dates: start: 20210224, end: 20210224
  7. PALONOSETRON HYDROCHLORIDE. [Concomitant]
     Active Substance: PALONOSETRON HYDROCHLORIDE
     Dates: start: 20210224, end: 20210224
  8. PALONOSETRON HYDROCHLORIDE. [Concomitant]
     Active Substance: PALONOSETRON HYDROCHLORIDE
     Dates: start: 20210407, end: 20210407
  9. IRBESARTAN. [Concomitant]
     Active Substance: IRBESARTAN
     Indication: HYPERTENSION
     Dates: start: 20181207
  10. OMEPRAZOLE SODIUM [Concomitant]
     Active Substance: OMEPRAZOLE SODIUM
     Dates: start: 20210407, end: 20210407

REACTIONS (2)
  - Laryngeal oedema [Not Recovered/Not Resolved]
  - Squamous cell carcinoma of the oral cavity [Fatal]

NARRATIVE: CASE EVENT DATE: 20210319
